FAERS Safety Report 24654028 (Version 2)
Quarter: 2024Q4

REPORT INFORMATION
  Report Type: Spontaneous
  Country: AT (occurrence: AT)
  Receive Date: 20241122
  Receipt Date: 20241217
  Transmission Date: 20250115
  Serious: Yes (Death, Life-Threatening, Hospitalization, Other)
  Sender: DR REDDYS
  Company Number: None

PATIENT
  Age: 75 Year
  Sex: Male

DRUGS (38)
  1. CYCLOPHOSPHAMIDE [Suspect]
     Active Substance: CYCLOPHOSPHAMIDE
     Indication: Encephalomyelitis
     Route: 065
  2. CYCLOPHOSPHAMIDE [Suspect]
     Active Substance: CYCLOPHOSPHAMIDE
     Indication: Muscle rigidity
  3. CYCLOPHOSPHAMIDE [Suspect]
     Active Substance: CYCLOPHOSPHAMIDE
     Indication: Myoclonus
  4. CYCLOPHOSPHAMIDE [Suspect]
     Active Substance: CYCLOPHOSPHAMIDE
     Indication: Immune-mediated neurological disorder
  5. BORTEZOMIB [Suspect]
     Active Substance: BORTEZOMIB
     Indication: Encephalomyelitis
     Route: 065
  6. BORTEZOMIB [Suspect]
     Active Substance: BORTEZOMIB
     Indication: Muscle rigidity
  7. BORTEZOMIB [Suspect]
     Active Substance: BORTEZOMIB
     Indication: Myoclonus
  8. BORTEZOMIB [Suspect]
     Active Substance: BORTEZOMIB
     Indication: Immune-mediated neurological disorder
  9. PROPOFOL [Suspect]
     Active Substance: PROPOFOL
     Indication: Sedation
  10. BACLOFEN [Suspect]
     Active Substance: BACLOFEN
     Indication: Encephalomyelitis
     Dosage: INTRATHECAL USE
     Route: 029
  11. BACLOFEN [Suspect]
     Active Substance: BACLOFEN
     Indication: Immune-mediated neurological disorder
  12. DEXMEDETOMIDINE [Suspect]
     Active Substance: DEXMEDETOMIDINE
     Indication: Sedation
     Route: 065
  13. DIAZEPAM [Suspect]
     Active Substance: DIAZEPAM
     Indication: Sedation
     Route: 065
  14. DRONABINOL [Suspect]
     Active Substance: DRONABINOL
     Indication: Encephalomyelitis
     Route: 065
  15. DRONABINOL [Suspect]
     Active Substance: DRONABINOL
     Indication: Immune-mediated neurological disorder
  16. HUMAN IMMUNOGLOBULIN G [Suspect]
     Active Substance: HUMAN IMMUNOGLOBULIN G
     Indication: Encephalomyelitis
     Route: 042
  17. IMMUNE GLOBULIN NOS [Suspect]
     Active Substance: IMMUNE GLOBULIN NOS
     Indication: Immune-mediated neurological disorder
  18. ISOFLURANE [Suspect]
     Active Substance: ISOFLURANE
     Indication: Sedation
     Route: 055
  19. METHOTREXATE [Suspect]
     Active Substance: METHOTREXATE
     Indication: Encephalomyelitis
  20. METHOTREXATE [Suspect]
     Active Substance: METHOTREXATE
     Indication: Immune-mediated neurological disorder
  21. METHYLPREDNISOLONE [Suspect]
     Active Substance: METHYLPREDNISOLONE
     Indication: Encephalomyelitis
  22. METHYLPREDNISOLONE [Suspect]
     Active Substance: METHYLPREDNISOLONE
     Indication: Immune-mediated neurological disorder
  23. SUFENTANIL [Suspect]
     Active Substance: SUFENTANIL
     Indication: Sedation
     Route: 065
  24. TIAPRIDE [Suspect]
     Active Substance: TIAPRIDE
     Indication: Encephalomyelitis
     Route: 065
  25. TIAPRIDE [Suspect]
     Active Substance: TIAPRIDE
     Indication: Immune-mediated neurological disorder
  26. METHYLPREDNISOLONE [Concomitant]
     Active Substance: METHYLPREDNISOLONE
     Indication: Encephalomyelitis
  27. METHYLPREDNISOLONE [Concomitant]
     Active Substance: METHYLPREDNISOLONE
     Indication: Muscle rigidity
  28. METHYLPREDNISOLONE [Concomitant]
     Active Substance: METHYLPREDNISOLONE
     Indication: Myoclonus
  29. HUMAN IMMUNOGLOBULIN G [Concomitant]
     Active Substance: HUMAN IMMUNOGLOBULIN G
     Indication: Encephalomyelitis
     Route: 042
  30. HUMAN IMMUNOGLOBULIN G [Concomitant]
     Active Substance: HUMAN IMMUNOGLOBULIN G
     Indication: Muscle rigidity
  31. HUMAN IMMUNOGLOBULIN G [Concomitant]
     Active Substance: HUMAN IMMUNOGLOBULIN G
     Indication: Myoclonus
  32. METHOTREXATE [Concomitant]
     Active Substance: METHOTREXATE
     Indication: Encephalomyelitis
     Route: 042
  33. METHOTREXATE [Concomitant]
     Active Substance: METHOTREXATE
     Indication: Muscle rigidity
  34. METHOTREXATE [Concomitant]
     Active Substance: METHOTREXATE
     Indication: Myoclonus
  35. ISOFLURANE [Concomitant]
     Active Substance: ISOFLURANE
     Indication: Encephalomyelitis
     Dosage: HIGH DOSE
     Route: 042
  36. ISOFLURANE [Concomitant]
     Active Substance: ISOFLURANE
     Indication: Muscle rigidity
  37. ISOFLURANE [Concomitant]
     Active Substance: ISOFLURANE
     Indication: Myoclonus
  38. TRYPTOPHAN [Concomitant]
     Active Substance: TRYPTOPHAN
     Indication: Immunoadsorption therapy
     Route: 065

REACTIONS (5)
  - Autonomic nervous system imbalance [Fatal]
  - Rebound effect [Fatal]
  - Drug ineffective [Fatal]
  - Agitation [Fatal]
  - Drug ineffective for unapproved indication [Unknown]
